FAERS Safety Report 8565867 (Version 3)
Quarter: 2013Q2

REPORT INFORMATION
  Report Type: Spontaneous
  Country: US (occurrence: US)
  Receive Date: 20120516
  Receipt Date: 20130401
  Transmission Date: 20140414
  Serious: Yes (Other)
  Sender: FDA-Public Use
  Company Number: CHPA2012US010316

PATIENT
  Age: 71 Year
  Sex: Female

DRUGS (9)
  1. EXCEDRIN EXTRA STRENGTH [Suspect]
     Indication: HEADACHE
     Dosage: 2 DF, QD
     Route: 048
  2. EXCEDRIN EXTRA STRENGTH [Suspect]
     Indication: ARTHRALGIA
     Dosage: 1 DF, QD
     Route: 048
  3. EXCEDRIN EXTRA STRENGTH [Suspect]
     Indication: BACK PAIN
     Dosage: 1/4 TO 1/2 DF, QD
     Route: 048
     Dates: start: 1999
  4. EXCEDRIN EXTRA STRENGTH [Suspect]
     Indication: BACK PAIN
     Dosage: 2 DF, UNK
     Route: 048
  5. EXCEDRIN EXTRA STRENGTH [Suspect]
     Indication: ARTHRALGIA
     Dosage: 1 DF, UNK
     Route: 048
  6. EXCEDRIN EXTRA STRENGTH [Suspect]
     Indication: HEADACHE
     Dosage: 0.5 DF, UNK
     Route: 048
  7. BAYER WOMENS ASPIRIN PLUS CALCIUM [Concomitant]
     Indication: PAIN
     Dosage: 1/8 OR 1/4 UNK, PRN
     Route: 048
  8. VITAMIN B NOS [Concomitant]
     Indication: VITAMIN SUPPLEMENTATION
     Dosage: UNK, UNK
     Route: 048
  9. DRUG THERAPY NOS [Concomitant]
     Dosage: UNK, UNK

REACTIONS (17)
  - Immune system disorder [Not Recovered/Not Resolved]
  - Renal atrophy [Not Recovered/Not Resolved]
  - Renal pain [Not Recovered/Not Resolved]
  - Hypertension [Not Recovered/Not Resolved]
  - Hyperthyroidism [Not Recovered/Not Resolved]
  - Back pain [Not Recovered/Not Resolved]
  - Musculoskeletal pain [Not Recovered/Not Resolved]
  - Gout [Not Recovered/Not Resolved]
  - Hypothyroidism [Not Recovered/Not Resolved]
  - Herpes zoster [Not Recovered/Not Resolved]
  - Skin discolouration [Not Recovered/Not Resolved]
  - Drug hypersensitivity [Not Recovered/Not Resolved]
  - Headache [Unknown]
  - Malaise [Unknown]
  - Arthritis [Unknown]
  - Incorrect drug administration duration [Unknown]
  - Underdose [Unknown]
